FAERS Safety Report 24319487 (Version 1)
Quarter: 2024Q3

REPORT INFORMATION
  Report Type: Spontaneous
  Country: US (occurrence: None)
  Receive Date: 20240914
  Receipt Date: 20240914
  Transmission Date: 20241017
  Serious: No
  Sender: ASTRAZENECA
  Company Number: 2024A194800

PATIENT
  Sex: Female

DRUGS (1)
  1. FARXIGA [Suspect]
     Active Substance: DAPAGLIFLOZIN PROPANEDIOL
     Route: 048
     Dates: start: 20240813, end: 20240822

REACTIONS (10)
  - Dermatitis [Unknown]
  - Skin irritation [Unknown]
  - Pruritus [Unknown]
  - Rash [Unknown]
  - Pollakiuria [Unknown]
  - Diarrhoea [Unknown]
  - Vaginal discharge [Unknown]
  - Vulvovaginal swelling [Unknown]
  - Vaginal disorder [Unknown]
  - Insomnia [Unknown]
